FAERS Safety Report 9931429 (Version 2)
Quarter: 2014Q1

REPORT INFORMATION
  Report Type: Report from Study
  Country: US (occurrence: US)
  Receive Date: 20140228
  Receipt Date: 20140228
  Transmission Date: 20141002
  Serious: Yes (Death, Hospitalization, Other)
  Sender: FDA-Public Use
  Company Number: US-BRISTOL-MYERS SQUIBB COMPANY-19026186

PATIENT
  Age: 79 Year
  Sex: Male

DRUGS (5)
  1. BLINDED: IPILIMUMAB [Suspect]
     Indication: SMALL CELL LUNG CANCER
  2. CARBOPLATIN [Suspect]
     Indication: SMALL CELL LUNG CANCER
  3. CISPLATIN [Suspect]
     Indication: SMALL CELL LUNG CANCER
  4. ETOPOSIDE [Suspect]
     Indication: SMALL CELL LUNG CANCER
  5. BLINDED: PLACEBO [Suspect]
     Indication: SMALL CELL LUNG CANCER

REACTIONS (3)
  - Pneumonia [Fatal]
  - Fall [Fatal]
  - Hip fracture [Unknown]
